FAERS Safety Report 4663672-2 (Version None)
Quarter: 2005Q2

REPORT INFORMATION
  Report Type: 
  Country: None (occurrence: None)
  Receive Date: 20050517
  Receipt Date: 20050420
  Transmission Date: 20051028
  Serious: No
  Sender: FDA-Public Use
  Company Number: 20050400103

PATIENT

DRUGS (1)
  1. FENTANYL (BAXTER) [Suspect]
     Dosage: 500 MCG CONTINUOUS IV
     Route: 042
     Dates: start: 20050309, end: 20050101

REACTIONS (3)
  - ACCIDENTAL OVERDOSE [None]
  - INCORRECT DRUG ADMINISTRATION RATE [None]
  - MEDICATION ERROR [None]
